FAERS Safety Report 15457854 (Version 1)
Quarter: 2018Q4

REPORT INFORMATION
  Report Type: Report from Study
  Country: US (occurrence: US)
  Receive Date: 20181003
  Receipt Date: 20181003
  Transmission Date: 20190204
  Serious: Yes (Other)
  Sender: FDA-Public Use
  Company Number: US-CONCORDIA PHARMACEUTICALS INC.-GSH201809-003422

PATIENT
  Age: 52 Year
  Sex: Female

DRUGS (1)
  1. HYDROXYCHLOROQUINE [Suspect]
     Active Substance: HYDROXYCHLOROQUINE
     Indication: SYSTEMIC LUPUS ERYTHEMATOSUS
     Dosage: DAILY DOSING BASED ON ACTUAL BODY WEIGHT WAS 7.1 MG/KG/DAY
     Route: 065

REACTIONS (5)
  - Retinal disorder [Unknown]
  - Retinal depigmentation [Unknown]
  - Toxicity to various agents [Unknown]
  - Disease progression [Unknown]
  - Retinopathy [Unknown]
